FAERS Safety Report 9093199 (Version 1)
Quarter: 2013Q1

REPORT INFORMATION
  Report Type: Spontaneous
  Country: US (occurrence: None)
  Receive Date: 20130122
  Receipt Date: 20130122
  Transmission Date: 20140127
  Serious: Yes (Death)
  Sender: FDA-Public Use
  Company Number: 1552960

PATIENT
  Age: 48 Year
  Sex: Female

DRUGS (5)
  1. METOCLOPRAMIDE [Suspect]
  2. MORPHINE SULFATE [Suspect]
  3. VENLAFAXINE [Suspect]
  4. AMITRIPTYLINE [Suspect]
  5. CITALOPRAM [Suspect]

REACTIONS (2)
  - Drug abuse [None]
  - Poisoning [None]
